FAERS Safety Report 6812751-X (Version None)
Quarter: 2010Q3

REPORT INFORMATION
  Report Type: 
  Country: None (occurrence: None)
  Receive Date: 20100701
  Receipt Date: 20100628
  Transmission Date: 20110219
  Serious: Yes (Other)
  Sender: FDA-Public Use
  Company Number: A0867804A

PATIENT
  Sex: Female
  Weight: 63 kg

DRUGS (3)
  1. SERETIDE [Suspect]
     Indication: ASTHMA
     Dosage: 2PUFF THREE TIMES PER DAY
     Route: 055
     Dates: start: 19980101
  2. BLOOD PRESSURE MEDICATION [Concomitant]
  3. HEART MEDICATION [Concomitant]
     Indication: ASTHMA

REACTIONS (2)
  - OVERDOSE [None]
  - PLEURAL EFFUSION [None]
